FAERS Safety Report 17244463 (Version 4)
Quarter: 2020Q3

REPORT INFORMATION
  Report Type: Spontaneous
  Country: US (occurrence: US)
  Receive Date: 20200107
  Receipt Date: 20200922
  Transmission Date: 20201102
  Serious: Yes (Other)
  Sender: FDA-Public Use
  Company Number: US-GILEAD-2020-0445056

PATIENT
  Sex: Female
  Weight: 121.09 kg

DRUGS (20)
  1. ASPIRIN [ACETYLSALICYLIC ACID] [Concomitant]
     Active Substance: ASPIRIN
     Dosage: UNK
  2. ZERIT [Concomitant]
     Active Substance: STAVUDINE
  3. CHANTIX [Concomitant]
     Active Substance: VARENICLINE TARTRATE
     Dosage: UNK
  4. VIREAD [Suspect]
     Active Substance: TENOFOVIR DISOPROXIL FUMARATE
     Indication: HIV INFECTION
     Dosage: UNK
     Route: 048
     Dates: start: 2004, end: 201608
  5. CORTISONE [Concomitant]
     Active Substance: CORTISONE
  6. EPIVIR [Concomitant]
     Active Substance: LAMIVUDINE
  7. REYATAZ [Concomitant]
     Active Substance: ATAZANAVIR SULFATE
  8. VIRAMUNE [Concomitant]
     Active Substance: NEVIRAPINE
  9. PREZISTA [Concomitant]
     Active Substance: DARUNAVIR ETHANOLATE
  10. RETROVIR [Concomitant]
     Active Substance: ZIDOVUDINE
  11. VIDEX EC [Concomitant]
     Active Substance: DIDANOSINE
  12. VIDEX [Concomitant]
     Active Substance: DIDANOSINE
  13. ACETAMINOPHEN. [Concomitant]
     Active Substance: ACETAMINOPHEN
  14. INVIRASE [Concomitant]
     Active Substance: SAQUINAVIR MESYLATE
  15. VIRACEPT [Concomitant]
     Active Substance: NELFINAVIR MESYLATE
  16. NORVIR [Concomitant]
     Active Substance: RITONAVIR
  17. COMBIVIR [Concomitant]
     Active Substance: LAMIVUDINE\ZIDOVUDINE
  18. ZOLPIDEM [Concomitant]
     Active Substance: ZOLPIDEM TARTRATE
     Dosage: UNK
  19. AMOXICILLIN. [Concomitant]
     Active Substance: AMOXICILLIN
  20. TRIUMEQ [Concomitant]
     Active Substance: ABACAVIR SULFATE\DOLUTEGRAVIR SODIUM\LAMIVUDINE
     Dosage: UNK

REACTIONS (13)
  - Loss of personal independence in daily activities [Not Recovered/Not Resolved]
  - Chronic kidney disease [Not Recovered/Not Resolved]
  - Economic problem [Unknown]
  - Joint injury [Unknown]
  - Tooth fracture [Not Recovered/Not Resolved]
  - Emotional distress [Not Recovered/Not Resolved]
  - Anxiety [Unknown]
  - Gait disturbance [Not Recovered/Not Resolved]
  - Osteopenia [Not Recovered/Not Resolved]
  - Bone density decreased [Unknown]
  - Anhedonia [Unknown]
  - Pain [Not Recovered/Not Resolved]
  - Tooth loss [Not Recovered/Not Resolved]

NARRATIVE: CASE EVENT DATE: 2009
